FAERS Safety Report 8125846-8 (Version None)
Quarter: 2012Q1

REPORT INFORMATION
  Report Type: 
  Country: None (occurrence: None)
  Receive Date: 20120209
  Receipt Date: 20120201
  Transmission Date: 20120608
  Serious: Yes (Other)
  Sender: FDA-Public Use
  Company Number: US-BRISTOL-MYERS SQUIBB COMPANY-16379158

PATIENT
  Age: 92 Year
  Sex: Female
  Weight: 73 kg

DRUGS (1)
  1. COUMADIN [Suspect]
     Dosage: PEACH OVAL TABS, COMBINED WITH 2.5MG 2 TIMES A WEEK OID,APPROX 3 YRS AGO STARTED AND TERMINATED,ONG

REACTIONS (1)
  - BLUE TOE SYNDROME [None]
